FAERS Safety Report 4842325-1 (Version None)
Quarter: 2005Q4

REPORT INFORMATION
  Report Type: 
  Country: None (occurrence: None)
  Receive Date: 20051129
  Receipt Date: 20051121
  Transmission Date: 20060501
  Serious: Yes (Death, Hospitalization)
  Sender: FDA-Public Use
  Company Number: 163-20785-05110290

PATIENT
  Age: 62 Year
  Sex: Female

DRUGS (1)
  1. THALOMID [Suspect]
     Indication: MULTIPLE MYELOMA
     Dosage: 100 MG, DAILY, ORAL
     Route: 048
     Dates: start: 20040913

REACTIONS (4)
  - DIALYSIS [None]
  - RENAL FAILURE [None]
  - RESPIRATORY ARREST [None]
  - RESPIRATORY DISTRESS [None]
